FAERS Safety Report 13638378 (Version 1)
Quarter: 2017Q2

REPORT INFORMATION
  Report Type: Spontaneous
  Country: FR (occurrence: FR)
  Receive Date: 20170609
  Receipt Date: 20170609
  Transmission Date: 20170830
  Serious: Yes (Disabling)
  Sender: FDA-Public Use
  Company Number: FR-BAYER-2017-104620

PATIENT
  Age: 43 Year
  Sex: Female

DRUGS (1)
  1. MIRENA [Suspect]
     Active Substance: LEVONORGESTREL
     Indication: CONTRACEPTION
     Dosage: 20 MCG/24HR, CONT
     Route: 015
     Dates: start: 20130704

REACTIONS (3)
  - Depression [Not Recovered/Not Resolved]
  - Weight increased [Not Recovered/Not Resolved]
  - Hypertrichosis [Not Recovered/Not Resolved]

NARRATIVE: CASE EVENT DATE: 2014
